FAERS Safety Report 10680070 (Version 2)
Quarter: 2014Q4

REPORT INFORMATION
  Report Type: Spontaneous
  Country: JP (occurrence: JP)
  Receive Date: 20141229
  Receipt Date: 20141229
  Transmission Date: 20150529
  Serious: Yes (Hospitalization, Other)
  Sender: FDA-Public Use
  Company Number: JP-GLAXOSMITHKLINE-JP2014JPN034799

PATIENT
  Age: 76 Year
  Sex: Female
  Weight: 50 kg

DRUGS (2)
  1. LAMICTAL [Suspect]
     Active Substance: LAMOTRIGINE
     Indication: BIPOLAR DISORDER
     Dosage: 25 MG, QD
     Route: 048
     Dates: start: 20141110, end: 20141120
  2. LAMICTAL [Suspect]
     Active Substance: LAMOTRIGINE
     Indication: DEPRESSION
     Dosage: 25 MG, BID
     Route: 048
     Dates: start: 20141121, end: 20141204

REACTIONS (9)
  - Generalised erythema [Recovering/Resolving]
  - Pyrexia [Recovering/Resolving]
  - Oral pain [Recovering/Resolving]
  - Mouth ulceration [Unknown]
  - Stevens-Johnson syndrome [Unknown]
  - Oropharyngeal pain [Recovering/Resolving]
  - Rash maculo-papular [Unknown]
  - Oral mucosa erosion [Unknown]
  - Lip erosion [Unknown]

NARRATIVE: CASE EVENT DATE: 20141203
